FAERS Safety Report 7640336-4 (Version None)
Quarter: 2011Q3

REPORT INFORMATION
  Report Type: 
  Country: None (occurrence: None)
  Receive Date: 20110728
  Receipt Date: 20110720
  Transmission Date: 20111222
  Serious: Yes (Death, Hospitalization, Other)
  Sender: FDA-Public Use
  Company Number: US-BAYER-2011-006267

PATIENT
  Age: 62 Year
  Sex: Male
  Weight: 84.354 kg

DRUGS (40)
  1. TRASYLOL [Suspect]
     Indication: IMPLANTABLE DEFIBRILLATOR INSERTION
  2. EPLERENONE [Concomitant]
     Dosage: 12.5 MG, QD
     Route: 048
  3. VALPROIC ACID [Concomitant]
     Dosage: 500 MG, BID
     Route: 048
  4. TRASYLOL [Suspect]
     Indication: HEART TRANSPLANT
     Dosage: 200ML CARDIOPUMLMONARY BYPASS PRIME
     Dates: start: 20070523, end: 20070523
  5. HEPARIN [Concomitant]
     Dosage: 9000 UNITS
     Dates: start: 20070522, end: 20070522
  6. POTASSIUM CHLORIDE [Concomitant]
     Dosage: 20 MILLIEQUIVALENTS DAILY
     Route: 048
  7. DOBUTAMINE HCL [Concomitant]
     Dosage: UNK
     Route: 042
     Dates: start: 20070522
  8. HEPARIN [Concomitant]
     Dosage: 4000 UNITS
     Dates: start: 20070522, end: 20070522
  9. DOPAMINE HCL [Concomitant]
     Dosage: UNK
     Route: 042
     Dates: start: 20070522
  10. MILRINONE [Concomitant]
     Dosage: UNK
     Route: 042
     Dates: start: 20070522
  11. RED BLOOD CELLS [Concomitant]
     Dosage: UNK
     Dates: start: 20060507
  12. TRASYLOL [Suspect]
     Indication: VENTRICULAR ASSIST DEVICE INSERTION
     Dosage: UNK
     Route: 042
     Dates: start: 20060507, end: 20060507
  13. LASIX [Concomitant]
  14. NORVASC [Concomitant]
     Dosage: 5 MG, QD
     Route: 048
  15. ATENOLOL [Concomitant]
     Dosage: 100 MG, QD
     Route: 048
  16. GLUCOPHAGE [Concomitant]
     Dosage: 1000 MG, BID
     Route: 048
  17. ATACAND [Concomitant]
     Dosage: 16 MG, QD
     Route: 048
  18. PITRESSIN [Concomitant]
     Dosage: UNK
     Route: 042
     Dates: start: 20070522
  19. LANOXIN [Concomitant]
     Dosage: 0.25 MG, QD
     Route: 048
  20. BENADRYL [Concomitant]
     Dosage: UNK
     Route: 042
     Dates: start: 20070522, end: 20070522
  21. PLATELETS [Concomitant]
     Dosage: UNK
     Dates: start: 20070507
  22. TRASYLOL [Suspect]
     Dosage: 4 MILLION UNITS
     Route: 042
     Dates: start: 20070522, end: 20070522
  23. DIGOXIN [Concomitant]
     Dosage: 0.25 MG, QD
     Route: 048
  24. ZOSYN [Concomitant]
     Dosage: UNK
     Route: 042
     Dates: start: 20070401
  25. VYTORIN [Concomitant]
     Dosage: 10/20 DAILY
     Route: 048
  26. HEPARIN [Concomitant]
     Dosage: 10,000 UNITS
     Dates: start: 20070522, end: 20070522
  27. PLAVIX [Concomitant]
     Dosage: 75 MG, QD
     Route: 048
  28. LEVOPHED [Concomitant]
     Dosage: UNK
     Route: 042
     Dates: start: 20070522
  29. TENORMIN [Concomitant]
     Dosage: 100 MG, QD
     Route: 048
  30. ACETYLSALICYLIC ACID SRT [Concomitant]
     Dosage: 325 MG, QD
     Route: 048
  31. LOPRESSOR [Concomitant]
     Dosage: 100 MG, BID
     Route: 048
  32. LASIX [Concomitant]
     Dosage: 40 MG, QD
     Route: 048
  33. PAXIL [Concomitant]
     Dosage: 30 MG, QD
     Route: 048
  34. COUMADIN [Concomitant]
     Dosage: 7.5 MG, HS
     Route: 048
  35. METHYLPREDNISOLONE ACETATE [Concomitant]
     Dosage: 1 GRAM
     Route: 042
     Dates: start: 20070522, end: 20070522
  36. PLASMA [Concomitant]
  37. CRYOPRECIPITATES [Concomitant]
     Dosage: UNK
     Dates: start: 20060507
  38. COZAAR [Concomitant]
     Dosage: 50 MG, BID
     Route: 048
  39. HEPARIN [Concomitant]
     Dosage: UNK
  40. MANNITOL [Concomitant]
     Dosage: 12.5 GRAMS
     Route: 042
     Dates: start: 20070522, end: 20070522

REACTIONS (12)
  - RENAL FAILURE [None]
  - RENAL INJURY [None]
  - RENAL IMPAIRMENT [None]
  - UNEVALUABLE EVENT [None]
  - FEAR [None]
  - DEATH [None]
  - MYOCARDIAL INFARCTION [None]
  - STRESS [None]
  - ANXIETY [None]
  - MULTI-ORGAN FAILURE [None]
  - PAIN [None]
  - EMOTIONAL DISORDER [None]
